FAERS Safety Report 19910459 (Version 1)
Quarter: 2021Q4

REPORT INFORMATION
  Report Type: Spontaneous
  Country: US (occurrence: US)
  Receive Date: 20211004
  Receipt Date: 20211004
  Transmission Date: 20220303
  Serious: No
  Sender: FDA-Public Use
  Company Number: 2021A725303

PATIENT
  Age: 72 Year
  Sex: Female
  Weight: 90.7 kg

DRUGS (7)
  1. BRILINTA [Suspect]
     Active Substance: TICAGRELOR
     Indication: Myocardial infarction
     Dosage: 60.0MG ONCE/SINGLE ADMINISTRATION
     Route: 048
     Dates: start: 20210702
  2. BRILINTA [Suspect]
     Active Substance: TICAGRELOR
     Indication: Stent placement
     Dosage: 60.0MG ONCE/SINGLE ADMINISTRATION
     Route: 048
     Dates: start: 20210702
  3. VITAMINS D [Concomitant]
  4. VITAMINS B [Concomitant]
  5. CYMBALTA [Concomitant]
     Active Substance: DULOXETINE HYDROCHLORIDE
     Indication: Fibromyalgia
  6. CYMBALTA [Concomitant]
     Active Substance: DULOXETINE HYDROCHLORIDE
     Indication: Anxiety
  7. UNSPECIFIED INGREDIENT [Concomitant]
     Active Substance: UNSPECIFIED INGREDIENT
     Indication: Myocardial infarction

REACTIONS (3)
  - Asthma [Unknown]
  - Weight decreased [Not Recovered/Not Resolved]
  - Decreased appetite [Unknown]

NARRATIVE: CASE EVENT DATE: 20210101
